FAERS Safety Report 14576589 (Version 2)
Quarter: 2018Q2

REPORT INFORMATION
  Report Type: Report from Study
  Country: None (occurrence: TW)
  Receive Date: 20180227
  Receipt Date: 20180403
  Transmission Date: 20180711
  Serious: Yes (Hospitalization)
  Sender: FDA-Public Use
  Company Number: TW-ABBVIE-18K-153-2267648-00

PATIENT
  Age: 61 Year
  Sex: Male
  Weight: 62 kg

DRUGS (3)
  1. HUMIRA [Suspect]
     Active Substance: ADALIMUMAB
     Indication: CROHN^S DISEASE
     Route: 058
     Dates: start: 20170306, end: 20180207
  2. IMURAN [Concomitant]
     Active Substance: AZATHIOPRINE
     Indication: CROHN^S DISEASE
     Route: 048
     Dates: start: 20160808
  3. HUMIRA [Suspect]
     Active Substance: ADALIMUMAB
     Indication: PRODUCT USED FOR UNKNOWN INDICATION
     Route: 058
     Dates: start: 20180319

REACTIONS (6)
  - Lymphadenopathy [Unknown]
  - Ileal perforation [Recovered/Resolved]
  - Abdominal pain [Recovering/Resolving]
  - Gastrointestinal inflammation [Unknown]
  - Fibrosis [Unknown]
  - Granuloma [Unknown]

NARRATIVE: CASE EVENT DATE: 20180216
